FAERS Safety Report 10194787 (Version 7)
Quarter: 2015Q1

REPORT INFORMATION
  Report Type: Report from Study
  Country: DE (occurrence: DE)
  Receive Date: 20140526
  Receipt Date: 20150309
  Transmission Date: 20150720
  Serious: Yes (Hospitalization)
  Sender: FDA-Public Use
  Company Number: DE-ROCHE-1400379

PATIENT
  Age: 78 Year
  Sex: Male
  Weight: 98.4 kg

DRUGS (32)
  1. CLARITHROMYCIN. [Concomitant]
     Active Substance: CLARITHROMYCIN
     Route: 048
     Dates: start: 20140818, end: 20140827
  2. OBINUTUZUMAB [Suspect]
     Active Substance: OBINUTUZUMAB
     Dosage: DATE OF LAST DOSE PRIOR TO SAE 06/MAY/2014
     Route: 042
     Dates: start: 20140506
  3. LAXANS (BISACODYL) [Concomitant]
     Active Substance: BISACODYL
     Indication: PROPHYLAXIS
     Route: 048
     Dates: start: 201407
  4. CEFTAZIDIM [Concomitant]
     Active Substance: CEFTAZIDIME
     Route: 065
     Dates: start: 201407, end: 201407
  5. KLACID (GERMANY) [Concomitant]
     Route: 065
     Dates: start: 201407, end: 201407
  6. SULBACTAM [Concomitant]
     Active Substance: SULBACTAM
     Route: 048
     Dates: start: 20140811, end: 20140815
  7. OMEPRAZOL [Concomitant]
     Active Substance: OMEPRAZOLE
     Indication: DIAPHRAGMATIC HERNIA
     Route: 048
     Dates: start: 1994
  8. CLEXANE [Concomitant]
     Active Substance: ENOXAPARIN SODIUM
     Route: 058
     Dates: start: 20140715, end: 20140721
  9. INNOHEP [Concomitant]
     Active Substance: TINZAPARIN SODIUM
     Route: 058
     Dates: start: 20140722
  10. DECODERM [Concomitant]
     Active Substance: FLUPREDNIDENE ACETATE
     Route: 061
     Dates: start: 20140717
  11. OBINUTUZUMAB [Suspect]
     Active Substance: OBINUTUZUMAB
     Indication: CHRONIC LYMPHOCYTIC LEUKAEMIA
     Dosage: SPIT DOSE OF 1000MG ON DAY 1 AND DAY 2
     Route: 042
     Dates: start: 20140505, end: 20140505
  12. ZOFRAN [Concomitant]
     Active Substance: ONDANSETRON HYDROCHLORIDE
     Indication: PROPHYLAXIS
     Route: 042
     Dates: start: 20140505, end: 20140708
  13. MACROGOL [Concomitant]
     Active Substance: POLYETHYLENE GLYCOLS
     Indication: PROPHYLAXIS
     Dosage: 1 BAG
     Route: 048
     Dates: start: 201407
  14. ERYTHROCYTE CONCENTRATE [Concomitant]
     Active Substance: HUMAN RED BLOOD CELL
     Route: 042
     Dates: start: 201407, end: 201407
  15. BENDAMUSTINE [Suspect]
     Active Substance: BENDAMUSTINE
     Indication: CHRONIC LYMPHOCYTIC LEUKAEMIA
     Route: 042
     Dates: start: 20140505, end: 20140505
  16. BENDAMUSTINE [Suspect]
     Active Substance: BENDAMUSTINE
     Route: 042
     Dates: start: 20140506
  17. FINASTERID [Concomitant]
     Indication: BENIGN PROSTATIC HYPERPLASIA
     Dosage: REPORTED AS ^FINASTERID WINTHROP^.
     Route: 048
     Dates: start: 2011
  18. DOXAZOSIN [Concomitant]
     Active Substance: DOXAZOSIN\DOXAZOSIN MESYLATE
     Indication: BENIGN PROSTATIC HYPERPLASIA
     Route: 048
     Dates: start: 2011
  19. PERFALGAN [Concomitant]
     Active Substance: ACETAMINOPHEN
     Route: 042
     Dates: start: 20140506, end: 20140506
  20. PARACETAMOL [Concomitant]
     Active Substance: ACETAMINOPHEN
     Indication: PROPHYLAXIS
     Route: 048
     Dates: start: 20140505, end: 20140707
  21. ALTEPLASE [Concomitant]
     Active Substance: ALTEPLASE
     Route: 042
     Dates: start: 20140713, end: 20140713
  22. DECORTIN [Concomitant]
     Active Substance: PREDNISONE
     Route: 048
     Dates: start: 20140701, end: 201407
  23. FERRO-SANOL DUODENAL [Concomitant]
     Active Substance: FERROUS SULFATE\GLYCINE
     Indication: ANAEMIA
     Route: 048
     Dates: start: 1940
  24. TAVEGIL [Concomitant]
     Active Substance: CLEMASTINE FUMARATE
     Indication: PROPHYLAXIS
     Route: 042
     Dates: start: 20140505, end: 20140707
  25. OBINUTUZUMAB [Suspect]
     Active Substance: OBINUTUZUMAB
     Route: 042
     Dates: start: 20140520
  26. BENDAMUSTINE [Suspect]
     Active Substance: BENDAMUSTINE
     Dosage: THERAPY WAS RESTARTED ON 20/MAY/2014.
     Route: 042
     Dates: start: 20140520
  27. SIMVASTIN [Concomitant]
     Active Substance: SIMVASTATIN
     Route: 048
     Dates: start: 1989
  28. PREDNISOLUT [Concomitant]
     Active Substance: PREDNISOLONE
     Indication: PROPHYLAXIS
     Route: 042
     Dates: start: 20140505, end: 20140707
  29. KALINOR [Concomitant]
     Active Substance: POTASSIUM CITRATE
     Route: 048
     Dates: start: 201407, end: 201407
  30. CIPROFLOXACIN. [Concomitant]
     Active Substance: CIPROFLOXACIN
     Route: 065
     Dates: start: 201407, end: 201407
  31. NOREPINEPHRINE [Concomitant]
     Active Substance: NOREPINEPHRINE\NOREPINEPHRINE BITARTRATE
     Route: 042
     Dates: start: 20140713, end: 20140713
  32. AMPICILLIN [Concomitant]
     Active Substance: AMPICILLIN
     Route: 048
     Dates: start: 20140811, end: 20140815

REACTIONS (1)
  - Nephrolithiasis [Recovered/Resolved with Sequelae]

NARRATIVE: CASE EVENT DATE: 20140510
